FAERS Safety Report 5464644-0 (Version None)
Quarter: 2007Q3

REPORT INFORMATION
  Report Type: 
  Country: None (occurrence: None)
  Receive Date: 20070921
  Receipt Date: 20070918
  Transmission Date: 20080115
  Serious: Yes (Hospitalization)
  Sender: FDA-Public Use
  Company Number: US-ALLERGAN-0710219US

PATIENT
  Sex: Female

DRUGS (11)
  1. BOTOX [Suspect]
     Indication: BLEPHAROSPASM
     Dosage: UNK, SINGLE
     Route: 030
     Dates: start: 20070815, end: 20070815
  2. BOTOX [Suspect]
     Indication: OPISTHOTONUS
  3. ZYPREXA [Concomitant]
  4. TETRABENAZINE [Concomitant]
  5. NEXIUM [Concomitant]
  6. NIACIN [Concomitant]
  7. MIRALAX [Concomitant]
  8. VITAMIN E [Concomitant]
  9. VITAMIN B COMPLEX CAP [Concomitant]
  10. MANGANESE [Concomitant]
  11. ZINC [Concomitant]

REACTIONS (5)
  - ABDOMINAL PAIN [None]
  - CONSTIPATION [None]
  - DYSPHAGIA [None]
  - HEADACHE [None]
  - MUSCULAR WEAKNESS [None]
